FAERS Safety Report 8914806 (Version 2)
Quarter: 2013Q1

REPORT INFORMATION
  Report Type: Spontaneous
  Country: US (occurrence: US)
  Receive Date: 20121119
  Receipt Date: 20130315
  Transmission Date: 20140127
  Serious: Yes (Other)
  Sender: FDA-Public Use
  Company Number: US-BAYER-2012-118917

PATIENT
  Age: 26 Year
  Sex: Female
  Weight: 46.71 kg

DRUGS (2)
  1. MIRENA [Suspect]
     Indication: CONTRACEPTION
     Dosage: 20 MCG/24HR, CONT
     Route: 015
     Dates: start: 20120817, end: 20121003
  2. MOTRIN [Concomitant]
     Dosage: 800 MG, UNK

REACTIONS (1)
  - Uterine perforation [None]
